FAERS Safety Report 10416419 (Version 2)
Quarter: 2014Q3

REPORT INFORMATION
  Report Type: Spontaneous
  Country: US (occurrence: US)
  Receive Date: 20140828
  Receipt Date: 20140828
  Transmission Date: 20150326
  Serious: Yes (Hospitalization)
  Sender: FDA-Public Use
  Company Number: US-GLAXOSMITHKLINE-A0757319A

PATIENT
  Sex: Female
  Weight: 80 kg

DRUGS (8)
  1. NORVASC [Concomitant]
     Active Substance: AMLODIPINE BESYLATE
  2. CAPTOPRIL. [Concomitant]
     Active Substance: CAPTOPRIL
  3. DIOVAN [Concomitant]
     Active Substance: VALSARTAN
  4. PLAVIX [Concomitant]
     Active Substance: CLOPIDOGREL BISULFATE
  5. AVANDIA [Suspect]
     Active Substance: ROSIGLITAZONE MALEATE
     Indication: TYPE 2 DIABETES MELLITUS
     Dosage: 8MG PER DAY
     Route: 048
     Dates: start: 20001115, end: 20031204
  6. ASPIRIN. [Concomitant]
     Active Substance: ASPIRIN
  7. ACCUPRIL [Concomitant]
     Active Substance: QUINAPRIL HYDROCHLORIDE
  8. ADVICOR [Concomitant]
     Active Substance: LOVASTATIN\NIACIN

REACTIONS (5)
  - Atrioventricular block first degree [Unknown]
  - Weight increased [Unknown]
  - Myocardial infarction [Unknown]
  - Abdominal distension [Unknown]
  - Coronary artery disease [Unknown]
